FAERS Safety Report 8176777-9 (Version None)
Quarter: 2012Q1

REPORT INFORMATION
  Report Type: 
  Country: None (occurrence: None)
  Receive Date: 20120301
  Receipt Date: 20120221
  Transmission Date: 20120608
  Serious: Yes (Other)
  Sender: FDA-Public Use
  Company Number: US-ALLERGAN-1201899US

PATIENT
  Age: 53 Year
  Sex: Male

DRUGS (2)
  1. SYMBICORT [Suspect]
     Indication: DYSPNOEA
  2. BOTULINUM TOXIN TYPE A [Suspect]
     Indication: MUSCLE SPASMS
     Dosage: UNK
     Route: 030
     Dates: start: 20111201, end: 20111201

REACTIONS (5)
  - MUSCLE RIGIDITY [None]
  - DYSPNOEA [None]
  - MYALGIA [None]
  - MUSCULAR WEAKNESS [None]
  - MUSCULOSKELETAL STIFFNESS [None]
